FAERS Safety Report 9350990 (Version 2)
Quarter: 2013Q3

REPORT INFORMATION
  Report Type: Spontaneous
  Country: ES (occurrence: ES)
  Receive Date: 20130617
  Receipt Date: 20130911
  Transmission Date: 20140515
  Serious: Yes (Other)
  Sender: FDA-Public Use
  Company Number: ES-JNJFOC-20130603949

PATIENT
  Sex: Male

DRUGS (1)
  1. ABIRATERONE ACETATE [Suspect]
     Indication: PROSTATE CANCER METASTATIC
     Route: 048

REACTIONS (2)
  - Toxicity to various agents [Unknown]
  - Disease progression [Unknown]
